FAERS Safety Report 5819009-6 (Version None)
Quarter: 2008Q3

REPORT INFORMATION
  Report Type: 
  Country: None (occurrence: None)
  Receive Date: 20080721
  Receipt Date: 20080721
  Transmission Date: 20090109
  Serious: Yes (Life-Threatening, Other)
  Sender: FDA-Public Use
  Company Number: None

PATIENT
  Age: 59 Year
  Sex: Male
  Weight: 75.7507 kg

DRUGS (1)
  1. REMODULIN [Suspect]
     Indication: PULMONARY ARTERIAL HYPERTENSION
     Dosage: 141 NG/KG/MIN CONTINUOUS IV DRIP
     Route: 041

REACTIONS (3)
  - CATHETER RELATED COMPLICATION [None]
  - INFECTION [None]
  - VOMITING [None]
